FAERS Safety Report 19469791 (Version 2)
Quarter: 2021Q3

REPORT INFORMATION
  Report Type: Spontaneous
  Country: DE (occurrence: DE)
  Receive Date: 20210628
  Receipt Date: 20210708
  Transmission Date: 20211014
  Serious: No
  Sender: FDA-Public Use
  Company Number: DE-BAUSCH-BL-2021-021131

PATIENT
  Age: 46 Year
  Sex: Male
  Weight: 80 kg

DRUGS (11)
  1. PREDNISOLONE. [Concomitant]
     Active Substance: PREDNISOLONE
     Dosage: DOSE AT TIME OF DISCONTINUATION
     Dates: end: 2015
  2. INSULIN [Concomitant]
     Active Substance: INSULIN NOS
     Indication: STEROID DIABETES
     Dosage: BEFORE THE MAIN MEALS
     Dates: start: 20150924, end: 20151009
  3. PREDNISOLONE. [Concomitant]
     Active Substance: PREDNISOLONE
     Indication: INFLAMMATORY BOWEL DISEASE
     Dosage: WITH SLOW TAPERING
     Route: 065
     Dates: start: 20150807, end: 20150924
  4. NPH INSULIN [Concomitant]
     Active Substance: INSULIN BEEF
     Indication: STEROID DIABETES
     Dosage: AT NIGHT
     Dates: start: 20150924, end: 20151009
  5. METFORMIN [Suspect]
     Active Substance: METFORMIN HYDROCHLORIDE
     Indication: STEROID DIABETES
     Route: 065
     Dates: start: 20151010, end: 20151210
  6. METFORMIN [Suspect]
     Active Substance: METFORMIN HYDROCHLORIDE
     Indication: PANCREATIC FAILURE
     Route: 065
     Dates: start: 20151102, end: 20160506
  7. INSULIN [Concomitant]
     Active Substance: INSULIN NOS
     Indication: PANCREATIC FAILURE
     Dates: start: 20160507
  8. METFORMIN [Suspect]
     Active Substance: METFORMIN HYDROCHLORIDE
     Indication: PANCREATITIS CHRONIC
     Route: 065
     Dates: start: 2016
  9. METFORMIN [Suspect]
     Active Substance: METFORMIN HYDROCHLORIDE
     Indication: TYPE 3 DIABETES MELLITUS
  10. KREON [Concomitant]
     Active Substance: PANCRELIPASE
     Indication: PANCREATIC FAILURE
  11. KREON [Concomitant]
     Active Substance: PANCRELIPASE
     Indication: PANCREATITIS CHRONIC

REACTIONS (2)
  - Contraindicated product administered [Unknown]
  - Therapeutic response decreased [Unknown]

NARRATIVE: CASE EVENT DATE: 20151010
